FAERS Safety Report 9786091 (Version 1)
Quarter: 2013Q4

REPORT INFORMATION
  Report Type: Spontaneous
  Country: IT (occurrence: None)
  Receive Date: 20131223
  Receipt Date: 20131223
  Transmission Date: 20140711
  Serious: Yes (Hospitalization)
  Sender: FDA-Public Use
  Company Number: 2013-003922

PATIENT
  Sex: Female

DRUGS (4)
  1. ACTONEL [Suspect]
     Route: 048
     Dates: start: 20090901
  2. NATECAL D3 (CALCIUM CARBONATE, COLECALCIFEROL) [Concomitant]
  3. MEPRAL (OMEPRAZOLE) [Concomitant]
  4. DELAPRIDE (DELAPRIL HYDROCHLORIDE, INDAPAMIDE) [Concomitant]

REACTIONS (1)
  - Periodontitis [None]
